FAERS Safety Report 13917851 (Version 4)
Quarter: 2018Q1

REPORT INFORMATION
  Report Type: Spontaneous
  Country: US (occurrence: US)
  Receive Date: 20170829
  Receipt Date: 20180326
  Transmission Date: 20180508
  Serious: Yes (Other)
  Sender: FDA-Public Use
  Company Number: US-PFIZER INC-2017366939

PATIENT
  Age: 62 Year
  Sex: Male
  Weight: 74.39 kg

DRUGS (7)
  1. METHOTREXATE SODIUM. [Suspect]
     Active Substance: METHOTREXATE SODIUM
     Indication: INFLAMMATION
  2. SULFASALAZINE. [Suspect]
     Active Substance: SULFASALAZINE
     Indication: ARTHRITIS
     Dosage: 2000 MG, 1X/DAY
  3. FOLIC ACID. [Concomitant]
     Active Substance: FOLIC ACID
     Indication: ARTHRITIS
  4. METHOTREXATE SODIUM. [Suspect]
     Active Substance: METHOTREXATE SODIUM
     Indication: ARTHRITIS
     Dosage: 20 MG, WEEKLY
  5. SULFASALAZINE. [Suspect]
     Active Substance: SULFASALAZINE
     Indication: INFLAMMATION
  6. FOLIC ACID. [Concomitant]
     Active Substance: FOLIC ACID
     Indication: INFLAMMATION
     Dosage: 2 MG, DAILY
  7. ENBREL [Suspect]
     Active Substance: ETANERCEPT
     Indication: ARTHRITIS
     Dosage: 15 ML, WEEKLY

REACTIONS (4)
  - Inflammation [Unknown]
  - Drug ineffective [Unknown]
  - Product use in unapproved indication [Unknown]
  - Iritis [Unknown]
